FAERS Safety Report 15575392 (Version 1)
Quarter: 2018Q4

REPORT INFORMATION
  Report Type: Spontaneous
  Country: JP (occurrence: JP)
  Receive Date: 20181101
  Receipt Date: 20181101
  Transmission Date: 20190205
  Serious: Yes (Other)
  Sender: FDA-Public Use
  Company Number: PHJP2018JP018423

PATIENT
  Age: 61 Year
  Sex: Female

DRUGS (2)
  1. ELTROMBOPAG [Suspect]
     Active Substance: ELTROMBOPAG
     Dosage: 37.5 MG, UNK
     Route: 048
  2. ELTROMBOPAG [Suspect]
     Active Substance: ELTROMBOPAG
     Indication: IMMUNE THROMBOCYTOPENIC PURPURA
     Dosage: 12.5 MG, QD
     Route: 048
     Dates: start: 2013

REACTIONS (2)
  - Myelofibrosis [Unknown]
  - Haemoglobin decreased [Unknown]
